FAERS Safety Report 4680211-0 (Version None)
Quarter: 2005Q2

REPORT INFORMATION
  Report Type: 
  Country: None (occurrence: None)
  Receive Date: 20050531
  Receipt Date: 20041115
  Transmission Date: 20051028
  Serious: Yes (Hospitalization)
  Sender: FDA-Public Use
  Company Number: FR-2004-035127

PATIENT
  Sex: Male

DRUGS (2)
  1. QUADRAMET [Suspect]
     Dosage: 1 DOSE, INTRAVANEOUS
     Route: 042
     Dates: start: 20041013, end: 20041013
  2. ZOMETA [Suspect]
     Indication: DRUG LEVEL
     Dosage: INTRAVENOUS
     Route: 042
     Dates: start: 20040914, end: 20041015

REACTIONS (2)
  - CONSTIPATION [None]
  - NAUSEA [None]
